FAERS Safety Report 9461982 (Version 2)
Quarter: 2013Q3

REPORT INFORMATION
  Report Type: Spontaneous
  Country: US (occurrence: US)
  Receive Date: 20130816
  Receipt Date: 20130826
  Transmission Date: 20140515
  Serious: Yes (Death)
  Sender: FDA-Public Use
  Company Number: US-BAXTER-2013BAX031903

PATIENT
  Sex: Male

DRUGS (1)
  1. DIANEAL LOW CALCIUM (ULTRABAG) [Suspect]
     Indication: PERITONEAL DIALYSIS
     Route: 033
     Dates: start: 20130507

REACTIONS (7)
  - Depression [Fatal]
  - Renal failure chronic [Fatal]
  - Coronary artery disease [Fatal]
  - Cardiac failure congestive [Fatal]
  - Therapy cessation [Fatal]
  - Liver disorder [Fatal]
  - Cardiac disorder [Fatal]
